FAERS Safety Report 8054290-7 (Version None)
Quarter: 2012Q1

REPORT INFORMATION
  Report Type: 
  Country: None (occurrence: None)
  Receive Date: 20120118
  Receipt Date: 20120111
  Transmission Date: 20120608
  Serious: Yes (Hospitalization)
  Sender: FDA-Public Use
  Company Number: PHHY2012IT002577

PATIENT
  Sex: Female

DRUGS (2)
  1. TEGRETOL [Suspect]
     Indication: EPILEPSY
     Dosage: 800 MG DAILY
     Route: 048
     Dates: start: 20111219
  2. AUGMENTIN '125' [Suspect]
     Indication: PHARYNGITIS
     Dosage: 2  DAILY
     Route: 048
     Dates: start: 20111230

REACTIONS (6)
  - LIVER FUNCTION TEST ABNORMAL [None]
  - THROMBOCYTOPENIA [None]
  - LEUKOPENIA [None]
  - HAEMOLYSIS [None]
  - RASH [None]
  - PAIN [None]
